FAERS Safety Report 7971765-7 (Version None)
Quarter: 2011Q4

REPORT INFORMATION
  Report Type: 
  Country: None (occurrence: None)
  Receive Date: 20111212
  Receipt Date: 20111205
  Transmission Date: 20120403
  Serious: Yes (Death, Hospitalization)
  Sender: FDA-Public Use
  Company Number: JP-CEPHALON-2011002581

PATIENT
  Sex: Male
  Weight: 60 kg

DRUGS (7)
  1. BENDAMUSTINE HCL [Suspect]
     Route: 042
     Dates: start: 20110507, end: 20110508
  2. PIPERACILLIN AND TAZOBACTAM [Concomitant]
     Dates: start: 20110508, end: 20110520
  3. FILGRASTIM [Concomitant]
     Dates: start: 20110511, end: 20110518
  4. RITUXIMAB [Suspect]
     Route: 042
     Dates: start: 20110506, end: 20110506
  5. BENDAMUSTINE HCL [Suspect]
     Indication: B-CELL LYMPHOMA
     Route: 042
     Dates: start: 20110414, end: 20110415
  6. RITUXIMAB [Suspect]
     Indication: B-CELL LYMPHOMA
     Route: 042
     Dates: start: 20110413, end: 20110413
  7. PREDNISOLONE [Concomitant]
     Dates: start: 20110507, end: 20110527

REACTIONS (2)
  - HAEMATURIA [None]
  - CYTOMEGALOVIRUS INFECTION [None]
